FAERS Safety Report 17810108 (Version 1)
Quarter: 2020Q2

REPORT INFORMATION
  Report Type: Spontaneous
  Country: US (occurrence: US)
  Receive Date: 20200520
  Receipt Date: 20200520
  Transmission Date: 20200714
  Serious: Yes (Hospitalization, Other)
  Sender: FDA-Public Use
  Company Number: US-BEH-2020117475

PATIENT
  Age: 23 Year
  Sex: Male
  Weight: 64.4 kg

DRUGS (2)
  1. REMICADE [Suspect]
     Active Substance: INFLIXIMAB
     Indication: SELECTIVE IGG SUBCLASS DEFICIENCY
     Dosage: 300 MILLIGRAM, EVERY 8 WEEKS
     Route: 065
     Dates: start: 201912
  2. PRIVIGEN [Suspect]
     Active Substance: HUMAN IMMUNOGLOBULIN G
     Indication: SELECTIVE IGG SUBCLASS DEFICIENCY
     Dosage: 30 GRAM, Q3W
     Route: 042
     Dates: start: 2017

REACTIONS (6)
  - Pyrexia [Unknown]
  - Ureteric obstruction [Unknown]
  - Abdominal adhesions [Unknown]
  - Kidney enlargement [Unknown]
  - Urostomy [Unknown]
  - Constipation [Unknown]

NARRATIVE: CASE EVENT DATE: 202005
